FAERS Safety Report 23187318 (Version 2)
Quarter: 2023Q4

REPORT INFORMATION
  Report Type: Spontaneous
  Country: US (occurrence: US)
  Receive Date: 20231115
  Receipt Date: 20231222
  Transmission Date: 20240110
  Serious: Yes (Life-Threatening, Hospitalization, Other)
  Sender: FDA-Public Use
  Company Number: US-BoehringerIngelheim-2023-BI-272797

PATIENT
  Age: 50 Year
  Sex: Female

DRUGS (1)
  1. EMPAGLIFLOZIN [Suspect]
     Active Substance: EMPAGLIFLOZIN
     Indication: Type 2 diabetes mellitus

REACTIONS (7)
  - Pulseless electrical activity [Unknown]
  - Septic shock [Unknown]
  - Emphysematous pyelonephritis [Unknown]
  - Cardiac failure [Unknown]
  - Cardiomyopathy [Unknown]
  - Pleural effusion [Unknown]
  - Generalised oedema [Unknown]
